FAERS Safety Report 6612549-1 (Version None)
Quarter: 2010Q1

REPORT INFORMATION
  Report Type: 
  Country: None (occurrence: None)
  Receive Date: 20100303
  Receipt Date: 20100122
  Transmission Date: 20100710
  Serious: Yes (Other)
  Sender: FDA-Public Use
  Company Number: US-BAXTER-2009BH010982

PATIENT
  Age: 75 Year
  Sex: Female
  Weight: 90 kg

DRUGS (25)
  1. HEPARIN SODIUM INJECTION [Suspect]
     Indication: DRUG USE FOR UNKNOWN INDICATION
     Route: 042
     Dates: start: 20080225, end: 20080225
  2. HEPARIN SODIUM INJECTION [Suspect]
     Route: 042
     Dates: start: 20080308, end: 20080308
  3. HEPARIN SODIUM 5,000 UNITS IN DEXTROSE 5% [Suspect]
     Route: 042
     Dates: start: 20080225, end: 20080319
  4. ATENOLOL [Concomitant]
     Indication: DRUG USE FOR UNKNOWN INDICATION
     Route: 065
  5. ARICEPT [Concomitant]
     Indication: DRUG USE FOR UNKNOWN INDICATION
     Route: 065
  6. PAXIL [Concomitant]
     Indication: DRUG USE FOR UNKNOWN INDICATION
     Route: 048
  7. WARFARIN SODIUM [Concomitant]
     Indication: DRUG USE FOR UNKNOWN INDICATION
     Route: 065
  8. POTASSIUM CHLORIDE [Concomitant]
     Indication: DRUG USE FOR UNKNOWN INDICATION
     Route: 042
     Dates: start: 20080309
  9. LORAZEPAM [Concomitant]
     Indication: DRUG USE FOR UNKNOWN INDICATION
     Route: 042
  10. PANTOPRAZOLE [Concomitant]
     Indication: DRUG USE FOR UNKNOWN INDICATION
     Route: 042
     Dates: start: 20080225, end: 20080228
  11. ATORVASTATIN CALCIUM [Concomitant]
     Indication: DRUG USE FOR UNKNOWN INDICATION
     Route: 048
     Dates: start: 20080225
  12. ACETAMINOPHEN [Concomitant]
     Indication: DRUG USE FOR UNKNOWN INDICATION
     Route: 054
     Dates: start: 20080225, end: 20080406
  13. PHENYTOIN [Concomitant]
     Indication: DRUG USE FOR UNKNOWN INDICATION
     Route: 042
     Dates: start: 20080225
  14. CRITIC-AID [Concomitant]
     Indication: ERYTHEMA
     Route: 061
     Dates: start: 20080227, end: 20080406
  15. XENADERM [Concomitant]
     Indication: SKIN ULCER
     Route: 061
     Dates: start: 20080227, end: 20080406
  16. ASPIRIN [Concomitant]
     Indication: DRUG USE FOR UNKNOWN INDICATION
     Route: 054
     Dates: start: 20080227, end: 20080228
  17. LEVOFLOXACIN [Concomitant]
     Indication: DRUG USE FOR UNKNOWN INDICATION
     Route: 042
     Dates: start: 20080227, end: 20080229
  18. DOCUSATE [Concomitant]
     Indication: DRUG USE FOR UNKNOWN INDICATION
     Dates: start: 20080307
  19. FLUCONAZOLE [Concomitant]
     Indication: DRUG USE FOR UNKNOWN INDICATION
     Route: 042
     Dates: start: 20080308
  20. FUROSEMIDE [Concomitant]
     Indication: DRUG USE FOR UNKNOWN INDICATION
     Route: 042
     Dates: start: 20080312
  21. ACETAZOLAMIDE [Concomitant]
     Indication: DRUG USE FOR UNKNOWN INDICATION
     Route: 042
     Dates: start: 20080312, end: 20080312
  22. OFLOXACIN [Concomitant]
     Indication: DRUG USE FOR UNKNOWN INDICATION
     Route: 001
     Dates: start: 20080312, end: 20080315
  23. DILTIAZEM HCL [Concomitant]
     Indication: DRUG USE FOR UNKNOWN INDICATION
     Route: 042
     Dates: start: 20080312, end: 20080312
  24. INSULIN GLARGINE [Concomitant]
     Indication: DRUG USE FOR UNKNOWN INDICATION
     Route: 058
     Dates: start: 20080312
  25. INSULIN HUMAN [Concomitant]
     Indication: DRUG USE FOR UNKNOWN INDICATION
     Route: 058
     Dates: start: 20080225, end: 20080303

REACTIONS (7)
  - ABDOMINAL WALL HAEMATOMA [None]
  - ANAEMIA [None]
  - ATRIAL FIBRILLATION [None]
  - ATRIAL FLUTTER [None]
  - BLOOD PRESSURE DECREASED [None]
  - CONVULSION [None]
  - URINARY TRACT INFECTION [None]
